FAERS Safety Report 16677435 (Version 1)
Quarter: 2019Q3

REPORT INFORMATION
  Report Type: Report from Study
  Country: CA (occurrence: CA)
  Receive Date: 20190807
  Receipt Date: 20190807
  Transmission Date: 20191004
  Serious: Yes (Other)
  Sender: FDA-Public Use
  Company Number: CA-HLSUS-2019-CA-000860

PATIENT
  Sex: Male

DRUGS (1)
  1. CLOZAPINE. [Suspect]
     Active Substance: CLOZAPINE
     Dates: start: 20171107

REACTIONS (8)
  - Constipation [Unknown]
  - Haemorrhage intracranial [Unknown]
  - Bowel movement irregularity [Unknown]
  - Seizure [Unknown]
  - Weight increased [Unknown]
  - Drug dependence [Unknown]
  - Cardiac disorder [Unknown]
  - Rectal prolapse [Unknown]
